FAERS Safety Report 6055085-6 (Version None)
Quarter: 2009Q1

REPORT INFORMATION
  Report Type: 
  Country: None (occurrence: None)
  Receive Date: 20090122
  Receipt Date: 20090116
  Transmission Date: 20090719
  Serious: Yes (Death)
  Sender: FDA-Public Use
  Company Number: US024905

PATIENT
  Age: 74 Year
  Sex: Male
  Weight: 89 kg

DRUGS (5)
  1. ACTIQ [Suspect]
     Indication: CANCER PAIN
     Dosage: 200 UG TID BUCCAL
     Route: 002
     Dates: start: 20080421, end: 20080501
  2. DIAMICRON [Concomitant]
  3. AVANDAMET [Concomitant]
  4. KARDEGIC [Concomitant]
  5. CRESTOR [Concomitant]

REACTIONS (2)
  - DRUG INEFFECTIVE [None]
  - PRODUCT QUALITY ISSUE [None]
